FAERS Safety Report 15901489 (Version 1)
Quarter: 2019Q1

REPORT INFORMATION
  Report Type: Spontaneous
  Country: US (occurrence: US)
  Receive Date: 20190201
  Receipt Date: 20190201
  Transmission Date: 20190417
  Serious: Yes (Life-Threatening, Hospitalization)
  Sender: FDA-Public Use
  Company Number: None

PATIENT
  Age: 66 Year
  Sex: Male
  Weight: 100.2 kg

DRUGS (12)
  1. LEVETIRACETAM. [Concomitant]
     Active Substance: LEVETIRACETAM
     Dates: start: 20180627, end: 20180627
  2. FENTANYL. [Concomitant]
     Active Substance: FENTANYL
     Dates: start: 20180627, end: 20180627
  3. FAMOTIDINE. [Concomitant]
     Active Substance: FAMOTIDINE
     Dates: start: 20180627, end: 20180702
  4. ACETAMINOPHEN. [Concomitant]
     Active Substance: ACETAMINOPHEN
     Dates: start: 20180627, end: 20180627
  5. MIDAZOLAM [Concomitant]
     Active Substance: MIDAZOLAM HYDROCHLORIDE
     Dates: start: 20180627, end: 20180627
  6. DOCUSATE SODIUM. [Concomitant]
     Active Substance: DOCUSATE SODIUM
     Dates: start: 20180626, end: 20180709
  7. KCENTRA [Suspect]
     Active Substance: COAGULATION FACTOR IX HUMAN\COAGULATION FACTOR VII HUMAN\COAGULATION FACTOR X HUMAN\PROTEIN C\PROTEIN S HUMAN\PROTHROMBIN
     Indication: CEREBRAL HAEMORRHAGE
     Dosage: ?          OTHER FREQUENCY:ONE TIME;?
     Route: 040
     Dates: start: 20180626, end: 20180626
  8. POTASSIUM CHLORIDE. [Concomitant]
     Active Substance: POTASSIUM CHLORIDE
     Dates: start: 20180627, end: 20180627
  9. DEFINITY [Concomitant]
     Active Substance: PERFLUTREN
     Dates: start: 20180627, end: 20180627
  10. CEFAZOLIN [Concomitant]
     Active Substance: CEFAZOLIN
     Dates: start: 20180627, end: 20180703
  11. CEFTRIAXONE. [Concomitant]
     Active Substance: CEFTRIAXONE
     Dates: start: 20180627, end: 20180627
  12. MAGNEVIST [Concomitant]
     Active Substance: GADOPENTETATE DIMEGLUMINE
     Dates: start: 20180627, end: 20180627

REACTIONS (4)
  - Endocarditis [None]
  - Acute myocardial infarction [None]
  - Ischaemic stroke [None]
  - Staphylococcal sepsis [None]

NARRATIVE: CASE EVENT DATE: 20180627
